FAERS Safety Report 9714207 (Version 1)
Quarter: 2013Q4

REPORT INFORMATION
  Report Type: Spontaneous
  Country: US (occurrence: US)
  Receive Date: 20131126
  Receipt Date: 20131126
  Transmission Date: 20140711
  Serious: No
  Sender: FDA-Public Use
  Company Number: US-GILEAD-2008-0019282

PATIENT
  Age: 59 Year
  Sex: Female
  Weight: 61.23 kg

DRUGS (7)
  1. LETAIRIS [Suspect]
     Indication: COR PULMONALE CHRONIC
     Route: 048
     Dates: start: 20081124
  2. MINOCYCLINE [Concomitant]
  3. MENEST [Concomitant]
  4. CITALOPRAM [Concomitant]
  5. PRILOSEC [Concomitant]
  6. ALBUTEROL AER HFA [Concomitant]
  7. FOSAMAX [Concomitant]

REACTIONS (1)
  - Abdominal distension [Not Recovered/Not Resolved]
